FAERS Safety Report 4152335 (Version 3)
Quarter: 2020Q2

REPORT INFORMATION
  Report Type: Spontaneous
  Country: DE (occurrence: DE)
  Receive Date: 20040610
  Receipt Date: 20200602
  Transmission Date: 20200714
  Serious: Yes (Hospitalization, Other)
  Sender: FDA-Public Use
  Company Number: PHBS2004DE07471

PATIENT
  Age: 70 Year
  Sex: Female

DRUGS (6)
  1. ACETYLSALICYLIC ACID [Concomitant]
     Active Substance: ASPIRIN
     Indication: PRODUCT USED FOR UNKNOWN INDICATION
     Dosage: UNK
     Route: 065
  2. TERBINAFINE. [Suspect]
     Active Substance: TERBINAFINE
     Indication: TRICHOPHYTOSIS
  3. ISOSORBIDE DINITRATE. [Concomitant]
     Active Substance: ISOSORBIDE DINITRATE
     Indication: CORONARY ARTERY DISEASE
     Dosage: UNK (LONG TERM)
     Route: 065
  4. TERBINAFINE. [Suspect]
     Active Substance: TERBINAFINE
     Indication: DERMATOPHYTOSIS OF NAIL
     Dosage: 250 MG, QD
     Route: 048
     Dates: start: 200108
  5. BEZAFIBRATE [Concomitant]
     Active Substance: BEZAFIBRATE
     Indication: HYPERCHOLESTEROLAEMIA
     Dosage: UNK
     Route: 065
  6. ACETYLSALICYLIC ACID [Concomitant]
     Active Substance: ASPIRIN
     Dosage: UNK (LONG TERM)
     Route: 065

REACTIONS (9)
  - Rash erythematous [Recovered/Resolved]
  - Skin exfoliation [Recovered/Resolved]
  - Antinuclear antibody positive [Recovered/Resolved]
  - Lymphocyte count decreased [Recovered/Resolved]
  - Subacute cutaneous lupus erythematosus [Recovered/Resolved]
  - Histone antibody positive [Recovered/Resolved]
  - Rheumatoid factor positive [Recovered/Resolved]
  - Pruritus [Recovered/Resolved]
  - Skin hypopigmentation [Recovered/Resolved]

NARRATIVE: CASE EVENT DATE: 2001
